FAERS Safety Report 8798649 (Version 2)
Quarter: 2014Q2

REPORT INFORMATION
  Report Type: Report from Study
  Country: US (occurrence: US)
  Receive Date: 20120917
  Receipt Date: 20140220
  Transmission Date: 20141212
  Serious: Yes (Death)
  Sender: FDA-Public Use
  Company Number: US-ROCHE-1128051

PATIENT
  Age: 77 Year
  Sex: Male

DRUGS (5)
  1. AVASTIN [Suspect]
     Indication: BRAIN NEOPLASM MALIGNANT
     Dosage: 900MG DAILY FOR ONE CYCLE IN 100ML NS, ANOTHER DOSE RECEIVED ON 14 FEB 2011
     Route: 042
     Dates: start: 20110131
  2. AVASTIN [Suspect]
     Indication: GLIOBLASTOMA MULTIFORME
  3. TEMOZOLOMIDE [Concomitant]
     Route: 065
  4. LORAZEPAM [Concomitant]
     Dosage: ONCE
     Route: 048
     Dates: start: 20110131, end: 20110131
  5. RADIATION [Concomitant]

REACTIONS (1)
  - Death [Fatal]
